FAERS Safety Report 4845757-0 (Version None)
Quarter: 2005Q4

REPORT INFORMATION
  Report Type: 
  Country: None (occurrence: None)
  Receive Date: 20051130
  Receipt Date: 20051117
  Transmission Date: 20060501
  Serious: Yes (Other)
  Sender: FDA-Public Use
  Company Number: GBWYE151517NOV05

PATIENT
  Sex: Female

DRUGS (1)
  1. EFFEXOR XR [Suspect]
     Indication: DEPRESSION

REACTIONS (9)
  - ABORTION SPONTANEOUS [None]
  - DEPRESSION [None]
  - DISEASE RECURRENCE [None]
  - DRUG EXPOSURE DURING PREGNANCY [None]
  - DRUG INEFFECTIVE [None]
  - DRUG WITHDRAWAL SYNDROME [None]
  - FOETAL GROWTH RETARDATION [None]
  - INTRA-UTERINE DEATH [None]
  - PREGNANCY [None]
